FAERS Safety Report 14284814 (Version 2)
Quarter: 2017Q4

REPORT INFORMATION
  Report Type: Report from Study
  Country: BE (occurrence: BE)
  Receive Date: 20171214
  Receipt Date: 20171215
  Transmission Date: 20180321
  Serious: Yes (Hospitalization, Other)
  Sender: FDA-Public Use
  Company Number: BE-ROCHE-2009406

PATIENT
  Age: 55 Year
  Sex: Male
  Weight: 73 kg

DRUGS (6)
  1. DAFALGAN FORTE [Concomitant]
     Route: 048
  2. PRETERAX [Concomitant]
     Active Substance: INDAPAMIDE\PERINDOPRIL
     Route: 048
  3. PANTOMED (BELGIUM) [Concomitant]
     Route: 048
  4. FLUOROURACIL. [Suspect]
     Active Substance: FLUOROURACIL
     Indication: RECTAL ADENOCARCINOMA
     Dosage: MOST RECENT DOSE-22/SEP/2017
     Route: 065
     Dates: start: 20170904, end: 20171006
  5. RECTOGESIC (BELGIUM) [Concomitant]
     Route: 054
  6. ATEZOLIZUMAB. [Suspect]
     Active Substance: ATEZOLIZUMAB
     Indication: RECTAL ADENOCARCINOMA
     Dosage: MOST RECENT DOSE- 18/SEP/2017
     Route: 042
     Dates: start: 20170918, end: 20171006

REACTIONS (6)
  - Bacterial sepsis [Recovered/Resolved]
  - Intentional product use issue [Unknown]
  - Pyrexia [Unknown]
  - Platelet count decreased [Recovering/Resolving]
  - Off label use [Unknown]
  - Thrombocytopenia [Recovering/Resolving]

NARRATIVE: CASE EVENT DATE: 20170918
